FAERS Safety Report 24575023 (Version 1)
Quarter: 2024Q4

REPORT INFORMATION
  Report Type: Report from Study
  Country: US (occurrence: US)
  Receive Date: 20241104
  Receipt Date: 20241104
  Transmission Date: 20250115
  Serious: Yes (Hospitalization, Other)
  Sender: ROCHE
  Company Number: US-ROCHE-10000022155

PATIENT
  Age: 82 Year
  Sex: Female
  Weight: 61.23 kg

DRUGS (5)
  1. ESBRIET [Suspect]
     Active Substance: PIRFENIDONE
     Indication: Idiopathic interstitial pneumonia
     Dosage: WITH PROTEIN
     Route: 048
     Dates: start: 20210412
  2. ESBRIET [Suspect]
     Active Substance: PIRFENIDONE
     Indication: Idiopathic pulmonary fibrosis
     Dosage: TAKE 1 TABLET BY MOUTH 3 TIMES A DAY WITH MEALS
     Route: 048
  3. ESBRIET [Suspect]
     Active Substance: PIRFENIDONE
     Dosage: WITH PROTEIN
     Route: 048
     Dates: start: 20220412
  4. NORCO [Concomitant]
     Active Substance: ACETAMINOPHEN\HYDROCODONE BITARTRATE
     Indication: Pain
     Route: 048
  5. TYLENOL [Concomitant]
     Active Substance: ACETAMINOPHEN
     Indication: Pain
     Route: 048

REACTIONS (10)
  - Fall [Unknown]
  - Femur fracture [Recovering/Resolving]
  - Urinary tract infection [Not Recovered/Not Resolved]
  - Dysuria [Recovering/Resolving]
  - Hand fracture [Not Recovered/Not Resolved]
  - Decreased appetite [Unknown]
  - Muscle spasms [Unknown]
  - Product dose omission issue [Unknown]
  - Off label use [Unknown]
  - Constipation [Unknown]

NARRATIVE: CASE EVENT DATE: 20240826
